FAERS Safety Report 4588383-3 (Version None)
Quarter: 2005Q1

REPORT INFORMATION
  Report Type: 
  Country: None (occurrence: None)
  Receive Date: 20050222
  Receipt Date: 20050207
  Transmission Date: 20050727
  Serious: Yes (Other)
  Sender: FDA-Public Use
  Company Number: ES-JNJFOC-20050202145

PATIENT
  Age: 47 Year
  Sex: Female
  Weight: 68 kg

DRUGS (4)
  1. TOPAMAX [Suspect]
     Indication: EATING DISORDER
     Route: 065
     Dates: start: 20040301
  2. TOPAMAX [Suspect]
     Indication: COMPULSIONS
     Route: 065
     Dates: start: 20040301
  3. CITALOPRAM [Concomitant]
     Route: 065
  4. ORFIDAL [Concomitant]
     Dosage: 1 OR 2 TABLETS A DAY
     Route: 065

REACTIONS (1)
  - LEUKOPENIA [None]
